FAERS Safety Report 17147502 (Version 8)
Quarter: 2025Q1

REPORT INFORMATION
  Report Type: Report from Study
  Country: CA (occurrence: CA)
  Receive Date: 20191212
  Receipt Date: 20250310
  Transmission Date: 20250408
  Serious: Yes (Hospitalization, Other)
  Sender: ROCHE
  Company Number: CA-002147023-NVSC2019CA031596

PATIENT
  Age: 32 Year
  Sex: Female
  Weight: 51.0 kg

DRUGS (15)
  1. XOLAIR [Suspect]
     Active Substance: OMALIZUMAB
     Indication: Chronic spontaneous urticaria
     Route: 058
     Dates: start: 20190809
  2. XOLAIR [Suspect]
     Active Substance: OMALIZUMAB
     Route: 058
     Dates: start: 20191101
  3. XOLAIR [Suspect]
     Active Substance: OMALIZUMAB
     Route: 058
  4. XOLAIR [Suspect]
     Active Substance: OMALIZUMAB
     Route: 058
  5. XOLAIR [Suspect]
     Active Substance: OMALIZUMAB
     Route: 058
     Dates: start: 20190709
  6. XOLAIR [Suspect]
     Active Substance: OMALIZUMAB
     Route: 058
  7. XOLAIR [Suspect]
     Active Substance: OMALIZUMAB
     Route: 065
     Dates: start: 20220222
  8. XOLAIR [Suspect]
     Active Substance: OMALIZUMAB
     Route: 058
     Dates: start: 20230823
  9. XOLAIR [Suspect]
     Active Substance: OMALIZUMAB
     Dosage: SOLUTION FOR INJECTION IN PRE-FILLED SYRINGE
     Route: 058
  10. AMOXICILLIN [Suspect]
     Active Substance: AMOXICILLIN
     Indication: Product used for unknown indication
     Route: 065
  11. PREDNISONE [Concomitant]
     Active Substance: PREDNISONE
     Indication: Product used for unknown indication
     Dosage: 1 DF, QD
     Route: 048
  12. BENADRYL [Concomitant]
     Active Substance: DIPHENHYDRAMINE HYDROCHLORIDE
     Indication: Product used for unknown indication
     Dosage: 1 DF, QID
     Route: 048
  13. ATARAX [Concomitant]
     Active Substance: HYDROXYZINE HYDROCHLORIDE
     Indication: Product used for unknown indication
     Dosage: UNK UNK, TID
     Route: 065
  14. RUPATADINE FUMARATE [Concomitant]
     Active Substance: RUPATADINE FUMARATE
     Indication: Product used for unknown indication
     Dosage: 1 DF, QID
     Route: 048
     Dates: start: 20190415
  15. SERTRALINE [Concomitant]
     Active Substance: SERTRALINE HYDROCHLORIDE
     Indication: Product used for unknown indication

REACTIONS (21)
  - Dysstasia [Unknown]
  - Urticaria [Not Recovered/Not Resolved]
  - Nausea [Unknown]
  - Lower respiratory tract infection [Unknown]
  - Drug hypersensitivity [Unknown]
  - Burning sensation [Unknown]
  - Product dose omission issue [Unknown]
  - Mechanical urticaria [Unknown]
  - Tic [Unknown]
  - Illness [Recovering/Resolving]
  - Pain [Unknown]
  - Vomiting [Recovered/Resolved]
  - Discomfort [Unknown]
  - Ear discomfort [Unknown]
  - Peripheral swelling [Unknown]
  - Dizziness [Not Recovered/Not Resolved]
  - Pain in extremity [Unknown]
  - Eye swelling [Unknown]
  - Vertigo [Not Recovered/Not Resolved]
  - Pruritus [Unknown]
  - Weight decreased [Unknown]

NARRATIVE: CASE EVENT DATE: 20191101
